FAERS Safety Report 18640606 (Version 3)
Quarter: 2021Q1

REPORT INFORMATION
  Report Type: Report from Study
  Country: AR (occurrence: AR)
  Receive Date: 20201221
  Receipt Date: 20210216
  Transmission Date: 20210419
  Serious: Yes (Death, Other)
  Sender: FDA-Public Use
  Company Number: AR-AMGEN-ARGSL2020032577

PATIENT
  Age: 87 Year
  Sex: Male

DRUGS (1)
  1. VECTIBIX [Suspect]
     Active Substance: PANITUMUMAB
     Indication: COLORECTAL CANCER METASTATIC
     Dosage: UNK UNK, Q2WK (EVERY 14 DAYS)
     Route: 065
     Dates: start: 20200210

REACTIONS (8)
  - Hypersensitivity [Not Recovered/Not Resolved]
  - Gastrointestinal disorder [Unknown]
  - Death [Fatal]
  - Dermatitis [Not Recovered/Not Resolved]
  - Diarrhoea [Not Recovered/Not Resolved]
  - Vomiting [Not Recovered/Not Resolved]
  - Fatigue [Unknown]
  - Sleep disorder [Unknown]

NARRATIVE: CASE EVENT DATE: 2020
